FAERS Safety Report 17127449 (Version 1)
Quarter: 2019Q4

REPORT INFORMATION
  Report Type: Spontaneous
  Country: US (occurrence: US)
  Receive Date: 20191114
  Receipt Date: 20191114
  Transmission Date: 20200122
  Serious: Yes (Hospitalization)
  Sender: FDA-Public Use
  Company Number: None

PATIENT
  Sex: Female

DRUGS (11)
  1. FLOVENT HFA AER [Concomitant]
  2. ELIDEL [Concomitant]
     Active Substance: PIMECROLIMUS
  3. VUSION [Concomitant]
     Active Substance: MICONAZOLE NITRATE\PETROLATUM\ZINC OXIDE
  4. MELATONIN [Concomitant]
     Active Substance: MELATONIN
  5. VITAMIN D [Concomitant]
     Active Substance: VITAMIN D NOS
  6. OMNITROPE [Suspect]
     Active Substance: SOMATROPIN
     Indication: SMALL FOR DATES BABY
     Route: 058
     Dates: start: 20190722
  7. ERYTHROM ATH SOL [Concomitant]
  8. CONTOUR TEST [Concomitant]
  9. XIFAXAN [Concomitant]
     Active Substance: RIFAXIMIN
  10. MICROLET MS LANCETS [Concomitant]
  11. GABAPENTIN SOL [Concomitant]

REACTIONS (1)
  - Pyrexia [None]
